FAERS Safety Report 14773910 (Version 1)
Quarter: 2018Q2

REPORT INFORMATION
  Report Type: Spontaneous
  Country: US (occurrence: US)
  Receive Date: 20180411
  Receipt Date: 20180411
  Transmission Date: 20180711
  Serious: Yes (Hospitalization)
  Sender: FDA-Public Use
  Company Number: None

PATIENT
  Age: 44 Year
  Sex: Male
  Weight: 133.4 kg

DRUGS (7)
  1. JANUVIA 100 MG DAILY [Concomitant]
  2. ATORVASTATIN 10MG DAILY [Concomitant]
  3. LISINOPRIL 20MG DAILY [Concomitant]
  4. FARXIGA [Suspect]
     Active Substance: DAPAGLIFLOZIN PROPANEDIOL
     Indication: DIABETES MELLITUS
     Route: 048
  5. XARELTO 20MG DAILY (FOR DVT) [Concomitant]
  6. METFORMIN 1000MG BID [Concomitant]
  7. TRAMADOL 50MG 1Q8H PRN PAIN [Concomitant]

REACTIONS (1)
  - Diabetic ketoacidosis [None]

NARRATIVE: CASE EVENT DATE: 20180310
